FAERS Safety Report 16791193 (Version 1)
Quarter: 2019Q3

REPORT INFORMATION
  Report Type: Spontaneous
  Country: US (occurrence: US)
  Receive Date: 20190910
  Receipt Date: 20190910
  Transmission Date: 20191005
  Serious: No
  Sender: FDA-Public Use
  Company Number: US-PERRIGO-18US014280

PATIENT
  Age: 57 Year
  Sex: Female
  Weight: 55.78 kg

DRUGS (2)
  1. EVAMIST [Suspect]
     Active Substance: ESTRADIOL
     Indication: HORMONE REPLACEMENT THERAPY
     Dosage: 1 DOSE, QD
     Route: 062
     Dates: start: 201611, end: 201808
  2. EVAMIST [Suspect]
     Active Substance: ESTRADIOL
     Dosage: PARTIAL DOSE, QD
     Route: 062
     Dates: start: 201808, end: 201808

REACTIONS (1)
  - Underdose [Recovered/Resolved]

NARRATIVE: CASE EVENT DATE: 201808
